FAERS Safety Report 25756149 (Version 1)
Quarter: 2025Q3

REPORT INFORMATION
  Report Type: Spontaneous
  Country: BR (occurrence: BR)
  Receive Date: 20250903
  Receipt Date: 20250903
  Transmission Date: 20251021
  Serious: Yes (Hospitalization, Other)
  Sender: SANOFI AVENTIS
  Company Number: BR-SANOFI-02637575

PATIENT
  Age: 44 Year
  Sex: Female

DRUGS (1)
  1. APIDRA [Suspect]
     Active Substance: INSULIN GLULISINE

REACTIONS (7)
  - Multiple sclerosis [Unknown]
  - Gait disturbance [Unknown]
  - Constipation [Unknown]
  - Speech disorder [Unknown]
  - Faecaloma [Unknown]
  - Urinary tract infection [Unknown]
  - Blood urine present [Unknown]
